FAERS Safety Report 16052995 (Version 1)
Quarter: 2019Q1

REPORT INFORMATION
  Report Type: Report from Study
  Country: US (occurrence: US)
  Receive Date: 20190308
  Receipt Date: 20190308
  Transmission Date: 20190418
  Serious: Yes (Hospitalization, Other)
  Sender: FDA-Public Use
  Company Number: US-BAYER-2019-026198

PATIENT
  Age: 78 Year
  Sex: Female

DRUGS (1)
  1. NEXAVAR [Suspect]
     Active Substance: SORAFENIB
     Indication: HEPATOCELLULAR CARCINOMA
     Dosage: 200 MG, BID
     Route: 048
     Dates: start: 20190124, end: 20190218

REACTIONS (14)
  - Upper respiratory tract infection [None]
  - Malnutrition [None]
  - Off label use [None]
  - Dehydration [None]
  - Oral mucosal blistering [Not Recovered/Not Resolved]
  - Nausea [None]
  - Diarrhoea [None]
  - Gait inability [Not Recovered/Not Resolved]
  - Decreased appetite [Not Recovered/Not Resolved]
  - Impaired self-care [Not Recovered/Not Resolved]
  - Asthenia [Not Recovered/Not Resolved]
  - Abdominal pain [None]
  - Fatigue [None]
  - Candida infection [None]

NARRATIVE: CASE EVENT DATE: 2019
